FAERS Safety Report 9236206 (Version 2)
Quarter: 2013Q3

REPORT INFORMATION
  Report Type: Spontaneous
  Country: US (occurrence: US)
  Receive Date: 20130417
  Receipt Date: 20130716
  Transmission Date: 20140515
  Serious: Yes (Other)
  Sender: FDA-Public Use
  Company Number: US-PFIZER INC-2013061435

PATIENT
  Age: 31 Year
  Sex: Male
  Weight: 28.6 kg

DRUGS (2)
  1. XYNTHA [Suspect]
     Indication: FACTOR VIII DEFICIENCY
     Dosage: 2.2 IU/KG PER INFUSION ON DEMAND
     Route: 042
  2. XYNTHA [Suspect]
     Dosage: UNK
     Route: 030
     Dates: start: 20120903, end: 20120905

REACTIONS (3)
  - Haemorrhage [Unknown]
  - Contusion [Recovered/Resolved]
  - Incorrect route of drug administration [Unknown]
